FAERS Safety Report 21658522 (Version 1)
Quarter: 2022Q4

REPORT INFORMATION
  Report Type: Spontaneous
  Country: DE (occurrence: None)
  Receive Date: 20221129
  Receipt Date: 20221129
  Transmission Date: 20230113
  Serious: Yes (Hospitalization, Other)
  Sender: FDA-Public Use
  Company Number: 2022A389995

PATIENT
  Age: 87 Year
  Sex: Male

DRUGS (3)
  1. TICAGRELOR [Suspect]
     Active Substance: TICAGRELOR
     Route: 065
  2. HEPARIN [Concomitant]
     Active Substance: HEPARIN SODIUM
  3. ASPIRIN [Concomitant]
     Active Substance: ASPIRIN

REACTIONS (6)
  - Haemodynamic instability [Unknown]
  - Respiratory failure [Unknown]
  - Pulmonary congestion [Unknown]
  - Pneumonia [Unknown]
  - Atrial fibrillation [Unknown]
  - Ejection fraction decreased [Unknown]
